FAERS Safety Report 24156367 (Version 2)
Quarter: 2024Q3

REPORT INFORMATION
  Report Type: Spontaneous
  Country: ES (occurrence: ES)
  Receive Date: 20240731
  Receipt Date: 20240816
  Transmission Date: 20241016
  Serious: Yes (Death, Other)
  Sender: SANOFI AVENTIS
  Company Number: ES-SA-SAC20240730001601

PATIENT
  Age: 52 Year
  Sex: Female
  Weight: 44.7 kg

DRUGS (8)
  1. MYOZYME [Suspect]
     Active Substance: ALGLUCOSIDASE ALFA
     Indication: Glycogen storage disease type II
     Dosage: 20 MG/KG QOW
     Route: 042
     Dates: start: 20180711
  2. VITAMIN D NOS [Concomitant]
     Active Substance: CHOLECALCIFEROL\ERGOCALCIFEROL
  3. IVABRADINE [Concomitant]
     Active Substance: IVABRADINE
  4. ENALAPRIL [Concomitant]
     Active Substance: ENALAPRIL
  5. MIRABEGRON [Concomitant]
     Active Substance: MIRABEGRON
  6. SERTRALINE [Concomitant]
     Active Substance: SERTRALINE HYDROCHLORIDE
     Dosage: UNK
  7. MIRTAZAPINE [Concomitant]
     Active Substance: MIRTAZAPINE
     Dosage: UNK
  8. SINGULAIR [Concomitant]
     Active Substance: MONTELUKAST SODIUM
     Dosage: UNK

REACTIONS (2)
  - Death [Fatal]
  - Respiratory muscle weakness [Unknown]

NARRATIVE: CASE EVENT DATE: 20240507
